FAERS Safety Report 6271488-9 (Version None)
Quarter: 2009Q3

REPORT INFORMATION
  Report Type: 
  Country: None (occurrence: None)
  Receive Date: 20090717
  Receipt Date: 20090709
  Transmission Date: 20100115
  Serious: Yes (Death, Hospitalization)
  Sender: FDA-Public Use
  Company Number: PHHY2008MX31200

PATIENT
  Age: 94 Year
  Sex: Male

DRUGS (1)
  1. DIOVAN [Suspect]
     Indication: HYPERTENSION
     Dosage: 1 TABLET (80 MG) PER DAY
     Route: 048
     Dates: start: 20070601, end: 20080501

REACTIONS (4)
  - HYPERTENSIVE CRISIS [None]
  - INGUINAL HERNIA [None]
  - INGUINAL HERNIA STRANGULATED [None]
  - MYOCARDIAL INFARCTION [None]
